FAERS Safety Report 25631037 (Version 2)
Quarter: 2025Q3

REPORT INFORMATION
  Report Type: Spontaneous
  Country: US (occurrence: US)
  Receive Date: 20250801
  Receipt Date: 20250818
  Transmission Date: 20251020
  Serious: Yes (Other)
  Sender: LUPIN
  Company Number: US-LUPIN PHARMACEUTICALS INC.-2025-06634

PATIENT
  Age: 44 Year

DRUGS (7)
  1. TOLVAPTAN [Suspect]
     Active Substance: TOLVAPTAN
     Indication: Congenital cystic kidney disease
     Dosage: 60 MILLIGRAM, QD (EVERY MORNING)
  2. TOLVAPTAN [Suspect]
     Active Substance: TOLVAPTAN
     Dosage: 60 MILLIGRAM, QD (EVERY MORNING)
  3. TOLVAPTAN [Suspect]
     Active Substance: TOLVAPTAN
     Indication: Congenital cystic kidney disease
     Dosage: 30 MILLIGRAM, QD, TAKE 60 MG BY MOUTH EVERY MORNING, AND TAKE 30 MG BY MOUTH 8 HOURS LATER EVERY DAY
  4. TOLVAPTAN [Suspect]
     Active Substance: TOLVAPTAN
     Dosage: 30 MILLIGRAM, QD, TAKE 60 MG BY MOUTH EVERY MORNING, AND TAKE 30 MG BY MOUTH 8 HOURS LATER EVERY DAY
  5. AMLODIPINE [Concomitant]
     Active Substance: AMLODIPINE BESYLATE
     Indication: Hypertension
     Route: 065
  6. LEXAPRO [Concomitant]
     Active Substance: ESCITALOPRAM OXALATE
     Indication: Anxiety
     Route: 065
  7. CLONAZEPAM [Concomitant]
     Active Substance: CLONAZEPAM
     Indication: Anxiety
     Route: 065

REACTIONS (4)
  - Abdominal infection [Unknown]
  - Diarrhoea [Unknown]
  - Dehydration [Unknown]
  - Product dose omission issue [Unknown]
